FAERS Safety Report 5068379-8 (Version None)
Quarter: 2006Q3

REPORT INFORMATION
  Report Type: 
  Country: None (occurrence: None)
  Receive Date: 20060802
  Receipt Date: 20050829
  Transmission Date: 20061208
  Serious: No
  Sender: FDA-Public Use
  Company Number: US-BRISTOL-MYERS SQUIBB COMPANY-13093257

PATIENT
  Age: 81 Year
  Sex: Female
  Weight: 50 kg

DRUGS (3)
  1. WARFARIN SODIUM [Suspect]
     Indication: CARDIAC OPERATION
  2. ATENOLOL [Suspect]
  3. ATIVAN [Concomitant]

REACTIONS (1)
  - ALOPECIA [None]
